FAERS Safety Report 7379274-3 (Version None)
Quarter: 2011Q1

REPORT INFORMATION
  Report Type: 
  Country: None (occurrence: None)
  Receive Date: 20110328
  Receipt Date: 20110204
  Transmission Date: 20110831
  Serious: Yes (Hospitalization)
  Sender: FDA-Public Use
  Company Number: DE-AMGEN-DEUNI2010003214

PATIENT
  Age: 14 Year
  Sex: Female

DRUGS (10)
  1. DARBEPOETIN ALFA [Suspect]
     Indication: RENAL FAILURE CHRONIC
     Dosage: 15 A?G, QWK
     Dates: start: 20040827
  2. VALETTE [Concomitant]
  3. COZAAR [Concomitant]
     Dosage: 37.5 MG, QD
  4. MAGNESIUM [Concomitant]
  5. NIFEDIPINE [Concomitant]
     Dosage: 5 MG, TID
  6. KEPPRA [Concomitant]
     Dosage: 500 MG, BID
  7. PROGRAF [Concomitant]
     Dosage: 2.5 NG, BID
  8. TRILEPTAL [Concomitant]
     Dosage: 390 MG, BID
  9. DELIX                              /00885601/ [Concomitant]
  10. ROPA [Concomitant]
     Dosage: 1 MG, BID

REACTIONS (1)
  - BLOOD CREATININE INCREASED [None]
